FAERS Safety Report 8541384 (Version 2)
Quarter: 2012Q4

REPORT INFORMATION
  Report Type: 
  Country: US (occurrence: US)
  Receive Date: 20120502
  Receipt Date: 20120926
  Transmission Date: 20130627
  Serious: Yes (Hospitalization, Other)
  Sender: FDA-Public Use
  Company Number: US-PFIZER INC-2012103883

PATIENT
  Age: 82 Year
  Sex: Female
  Weight: 85.71 kg

DRUGS (6)
  1. LIPITOR [Suspect]
     Indication: BLOOD CHOLESTEROL INCREASED
     Dosage: 10 mg, daily
     Route: 048
  2. ACTOS [Suspect]
     Indication: DIABETES MELLITUS
     Dosage: UNK
  3. ATENOLOL [Concomitant]
     Indication: HYPERTENSION
     Dosage: 50 mg, daily
     Dates: start: 1997
  4. METFORMIN [Concomitant]
     Indication: DIABETES MELLITUS
     Dosage: 500 mg, daily
  5. AMARYL [Concomitant]
     Indication: DIABETES MELLITUS
     Dosage: 2 mg, 2x/day
  6. BABY ASPIRIN [Concomitant]
     Dosage: 81 mg, daily

REACTIONS (5)
  - Infection [Recovering/Resolving]
  - Apparent death [Unknown]
  - Infection [Recovering/Resolving]
  - Glycosylated haemoglobin increased [Unknown]
  - Weight increased [Unknown]
